FAERS Safety Report 9434534 (Version 1)
Quarter: 2013Q3

REPORT INFORMATION
  Report Type: Spontaneous
  Country: US (occurrence: US)
  Receive Date: 20130801
  Receipt Date: 20130801
  Transmission Date: 20140515
  Serious: No
  Sender: FDA-Public Use
  Company Number: US-PFIZER INC-2013221713

PATIENT
  Sex: Female

DRUGS (2)
  1. PREMARIN [Suspect]
     Dosage: UNK
     Dates: start: 1998
  2. I-COOL [Suspect]
     Dosage: UNK

REACTIONS (6)
  - Insomnia [Unknown]
  - Hot flush [Unknown]
  - Skin disorder [Unknown]
  - Vulvovaginal dryness [Unknown]
  - Depression [Unknown]
  - Drug effect delayed [None]
